FAERS Safety Report 13563589 (Version 1)
Quarter: 2017Q2

REPORT INFORMATION
  Report Type: Spontaneous
  Country: US (occurrence: US)
  Receive Date: 20170519
  Receipt Date: 20170519
  Transmission Date: 20170830
  Serious: Yes (Other)
  Sender: FDA-Public Use
  Company Number: None

PATIENT

DRUGS (1)
  1. TRANSDERM SCOP [Suspect]
     Active Substance: SCOPOLAMINE
     Dosage: OTHER FREQUENCY:Q72H;?
     Route: 062

REACTIONS (4)
  - Device defective [None]
  - Product lot number issue [None]
  - Incorrect dose administered by device [None]
  - Device leakage [None]

NARRATIVE: CASE EVENT DATE: 20170518
